FAERS Safety Report 6926173-4 (Version None)
Quarter: 2010Q3

REPORT INFORMATION
  Report Type: 
  Country: None (occurrence: None)
  Receive Date: 20100816
  Receipt Date: 20100804
  Transmission Date: 20110219
  Serious: Yes (Other)
  Sender: FDA-Public Use
  Company Number: US-PFIZER INC-2010098746

PATIENT
  Sex: Male
  Weight: 81 kg

DRUGS (5)
  1. CHANTIX [Suspect]
     Indication: SMOKING CESSATION THERAPY
     Dosage: 0.5 MG, UNK
     Route: 048
  2. LEXAPRO [Concomitant]
     Dosage: UNK
  3. LEVOTHROID [Concomitant]
     Dosage: 0.5 MG, UNK
  4. SIMVASTATIN [Concomitant]
     Dosage: 40 MG, UNK
  5. LISINOPRIL AND HYDROCHLOROTHIAZIDE [Concomitant]
     Dosage: 10/12.5 MG, UNK

REACTIONS (3)
  - CATARACT [None]
  - HYPERTENSION [None]
  - RHEUMATOID ARTHRITIS [None]
